FAERS Safety Report 4543380-9 (Version None)
Quarter: 2004Q4

REPORT INFORMATION
  Report Type: 
  Country: None (occurrence: None)
  Receive Date: 20041230
  Receipt Date: 20041230
  Transmission Date: 20050328
  Serious: Yes (Death)
  Sender: FDA-Public Use
  Company Number: None

PATIENT
  Age: 70 Year
  Sex: Female
  Weight: 53.978 kg

DRUGS (13)
  1. IRESSA [Suspect]
  2. CLARITIN [Concomitant]
  3. .. [Concomitant]
  4. PRILOSEC [Concomitant]
  5. ATIVAN [Concomitant]
  6. MORPHINE [Concomitant]
  7. LORTAB [Concomitant]
  8. LEVAQUIN [Concomitant]
  9. NEXIUM [Concomitant]
  10. BACTRUM [Concomitant]
  11. ELLIVIL [Concomitant]
  12. LORAZEPAM [Concomitant]
  13. DIFLUCAN [Concomitant]

REACTIONS (4)
  - ASTHENIA [None]
  - MALIGNANT NEOPLASM PROGRESSION [None]
  - PNEUMONIA [None]
  - TREATMENT NONCOMPLIANCE [None]
